FAERS Safety Report 24675501 (Version 1)
Quarter: 2024Q4

REPORT INFORMATION
  Report Type: Spontaneous
  Country: US (occurrence: US)
  Receive Date: 20241128
  Receipt Date: 20241128
  Transmission Date: 20250115
  Serious: No
  Sender: MERCK
  Company Number: US-009507513-2411USA010973

PATIENT
  Sex: Female

DRUGS (1)
  1. WINREVAIR [Suspect]
     Active Substance: SOTATERCEPT-CSRK
     Dosage: 1 INJECTION, Q3W
     Dates: start: 2024

REACTIONS (4)
  - Abdominal pain [Recovering/Resolving]
  - Headache [Unknown]
  - Increased need for sleep [Unknown]
  - Hunger [Unknown]

NARRATIVE: CASE EVENT DATE: 20240101
